FAERS Safety Report 25406670 (Version 1)
Quarter: 2025Q2

REPORT INFORMATION
  Report Type: Spontaneous
  Country: US (occurrence: US)
  Receive Date: 20250606
  Receipt Date: 20250606
  Transmission Date: 20250717
  Serious: No
  Sender: Kenvue
  Company Number: US-KENVUE-20250504087

PATIENT
  Sex: Female

DRUGS (9)
  1. IMODIUM [Suspect]
     Active Substance: LOPERAMIDE HYDROCHLORIDE
     Indication: Diarrhoea
     Route: 065
  2. OFEV [Concomitant]
     Active Substance: NINTEDANIB
     Indication: Pulmonary fibrosis
     Dosage: 100 MILLIGRAM, TWICE A DAY
     Route: 048
     Dates: start: 2025
  3. OFEV [Concomitant]
     Active Substance: NINTEDANIB
     Indication: Interstitial lung disease
     Dosage: 100 MILLIGRAM, ONCE A DAY
     Route: 048
     Dates: start: 20250202, end: 20250228
  4. OFEV [Concomitant]
     Active Substance: NINTEDANIB
     Dosage: 100 MILLIGRAM, TWICE A DAY
     Route: 048
     Dates: start: 202109, end: 202310
  5. OFEV [Concomitant]
     Active Substance: NINTEDANIB
     Dosage: 150 MILLIGRAM, TWICE A DAY
     Route: 048
     Dates: start: 2023
  6. VITAMINS [Concomitant]
     Active Substance: VITAMINS
     Indication: Product used for unknown indication
     Route: 065
  7. OXYGEN [Concomitant]
     Active Substance: OXYGEN
     Indication: Product used for unknown indication
     Route: 065
  8. UNSPECIFIED INGREDIENT [Concomitant]
     Active Substance: UNSPECIFIED INGREDIENT
     Indication: Nausea
     Route: 065
  9. MYCOPHENOLIC ACID [Concomitant]
     Active Substance: MYCOPHENOLIC ACID
     Indication: Product used for unknown indication
     Route: 065

REACTIONS (2)
  - Constipation [Unknown]
  - Expired product administered [Unknown]
